FAERS Safety Report 8196794-2 (Version None)
Quarter: 2012Q1

REPORT INFORMATION
  Report Type: 
  Country: None (occurrence: None)
  Receive Date: 20120307
  Receipt Date: 20120227
  Transmission Date: 20120608
  Serious: Yes (Other)
  Sender: FDA-Public Use
  Company Number: DSU-2012-01602

PATIENT
  Age: 47 Year
  Sex: Female
  Weight: 78.9259 kg

DRUGS (2)
  1. BENICAR HCT [Suspect]
     Indication: HYPERTENSION
     Dosage: 20/12.5 MG (QD), PER ORAL; 40/25 MG (QD), PER ORAL
     Route: 048
  2. VITAMINS (ERGOCALCIFEROL, ASCORBIC ACID, THIAMINE HYDROCHLORIDE, RETIN [Concomitant]

REACTIONS (13)
  - BREAST CANCER FEMALE [None]
  - PALPITATIONS [None]
  - FEELING COLD [None]
  - SKIN WRINKLING [None]
  - METABOLIC SYNDROME [None]
  - HYPERHIDROSIS [None]
  - DRUG INEFFECTIVE [None]
  - MENORRHAGIA [None]
  - DRY SKIN [None]
  - BLOOD TRIGLYCERIDES INCREASED [None]
  - THYROID DISORDER [None]
  - DIZZINESS [None]
  - MENOPAUSE [None]
